FAERS Safety Report 20219207 (Version 1)
Quarter: 2021Q4

REPORT INFORMATION
  Report Type: Spontaneous
  Country: US (occurrence: US)
  Receive Date: 20211222
  Receipt Date: 20211222
  Transmission Date: 20220303
  Serious: No
  Sender: FDA-Public Use
  Company Number: US-SA-SAC20211217001034

PATIENT
  Age: 53 Year
  Sex: Female

DRUGS (8)
  1. DUPIXENT [Suspect]
     Active Substance: DUPILUMAB
     Indication: Asthma
     Dosage: 300 MG, QOW
     Route: 058
     Dates: start: 20210319
  2. AZELASTINE [Concomitant]
     Active Substance: AZELASTINE
  3. ENOXAPARIN [Concomitant]
     Active Substance: ENOXAPARIN
  4. METHOTREXATE [Concomitant]
     Active Substance: METHOTREXATE
  5. MONTELUKAST [Concomitant]
     Active Substance: MONTELUKAST SODIUM
  6. OXYCODONE [Concomitant]
     Active Substance: OXYCODONE
  7. TAMOXIFEN [Concomitant]
     Active Substance: TAMOXIFEN
  8. BUDESONIDE\FORMOTEROL [Concomitant]
     Active Substance: BUDESONIDE\FORMOTEROL

REACTIONS (1)
  - Hysterectomy [Unknown]

NARRATIVE: CASE EVENT DATE: 20211210
